FAERS Safety Report 5961028-3 (Version None)
Quarter: 2008Q4

REPORT INFORMATION
  Report Type: 
  Country: None (occurrence: None)
  Receive Date: 20081121
  Receipt Date: 20080721
  Transmission Date: 20090506
  Serious: No
  Sender: FDA-Public Use
  Company Number: A0735371A

PATIENT
  Age: 61 Year
  Sex: Female

DRUGS (6)
  1. LANOXIN [Suspect]
     Dosage: .125MG TWICE PER DAY
     Route: 048
     Dates: start: 20080520
  2. DIGOXIN [Suspect]
     Indication: DRUG USE FOR UNKNOWN INDICATION
     Dosage: .25MG UNKNOWN
     Route: 065
  3. CELEXA [Concomitant]
  4. EVISTA [Concomitant]
  5. SYNTHROID [Concomitant]
  6. ALLEGRA [Concomitant]

REACTIONS (2)
  - DRUG INEFFECTIVE [None]
  - EXTRASYSTOLES [None]
